FAERS Safety Report 8606552-X (Version None)
Quarter: 2012Q3

REPORT INFORMATION
  Report Type: 
  Country: None (occurrence: None)
  Receive Date: 20120820
  Receipt Date: 20120814
  Transmission Date: 20120928
  Serious: Yes (Hospitalization, Other)
  Sender: FDA-Public Use
  Company Number: US-PFIZER INC-2012198961

PATIENT
  Age: 30 Year
  Sex: Male
  Weight: 81.633 kg

DRUGS (6)
  1. LYRICA [Suspect]
     Dosage: 150 MG, 2X/DAY
     Route: 048
  2. LYRICA [Suspect]
     Dosage: 100 MG, 3X/DAY
     Route: 048
  3. LYRICA [Suspect]
     Dosage: 75 MG, 3X/DAY
     Route: 048
     Dates: start: 20110101
  4. LYRICA [Suspect]
     Indication: EPILEPSY
     Dosage: 25 MG, DAILY
     Route: 048
     Dates: start: 20050101
  5. LACOSAMIDE [Suspect]
     Indication: EPILEPSY
     Dosage: 200 MG,DAILY
     Route: 048
     Dates: start: 20120401
  6. LYRICA [Suspect]
     Dosage: 300 MG, 2X/DAY
     Route: 048
     Dates: start: 20120501

REACTIONS (6)
  - FALL [None]
  - INJURY [None]
  - CONVULSION [None]
  - JAW FRACTURE [None]
  - SWELLING FACE [None]
  - PAIN IN JAW [None]
